FAERS Safety Report 10406668 (Version 6)
Quarter: 2015Q1

REPORT INFORMATION
  Report Type: Spontaneous
  Country: US (occurrence: US)
  Receive Date: 20140825
  Receipt Date: 20150218
  Transmission Date: 20150720
  Serious: No
  Sender: FDA-Public Use
  Company Number: US-PFIZER INC-2014232789

PATIENT
  Age: 66 Year
  Sex: Male
  Weight: 64.85 kg

DRUGS (9)
  1. AMLODIPINE [Concomitant]
     Active Substance: AMLODIPINE BESYLATE
     Dosage: UNK
  2. HYDROCODONE [Concomitant]
     Active Substance: HYDROCODONE
     Dosage: UNK
  3. MELATONIN [Concomitant]
     Active Substance: MELATONIN
     Dosage: UNK
  4. REGLAN [Concomitant]
     Active Substance: METOCLOPRAMIDE HYDROCHLORIDE
     Dosage: UNK
  5. TYLENOL [Concomitant]
     Active Substance: ACETAMINOPHEN
     Dosage: UNK
  6. FENTANYL. [Concomitant]
     Active Substance: FENTANYL
     Dosage: 25 UG, UNK
  7. MAGIC MOUTHWASH [Concomitant]
     Active Substance: DIPHENHYDRAMINE HYDROCHLORIDE\LIDOCAINE HYDROCHLORIDE\NYSTATIN
     Dosage: UNK
  8. AFINITOR [Concomitant]
     Active Substance: EVEROLIMUS
     Dosage: UNK
  9. SUTENT [Suspect]
     Active Substance: SUNITINIB MALATE
     Indication: METASTATIC RENAL CELL CARCINOMA
     Dosage: 50 MG, UNK

REACTIONS (24)
  - Rash pruritic [Not Recovered/Not Resolved]
  - Dysphonia [Unknown]
  - Gait disturbance [Unknown]
  - Muscular weakness [Unknown]
  - Headache [Unknown]
  - Skin fissures [Unknown]
  - Pain in extremity [Unknown]
  - Hypoaesthesia [Unknown]
  - Rash [Not Recovered/Not Resolved]
  - Insomnia [Unknown]
  - Skin lesion [Not Recovered/Not Resolved]
  - Fatigue [Unknown]
  - Hypertension [Unknown]
  - Pain in extremity [Recovering/Resolving]
  - Oropharyngeal pain [Unknown]
  - Palmar-plantar erythrodysaesthesia syndrome [Not Recovered/Not Resolved]
  - Myalgia [Unknown]
  - Dysphagia [Unknown]
  - Weight decreased [Unknown]
  - Pruritus [Not Recovered/Not Resolved]
  - Frustration [Unknown]
  - Hypophagia [Unknown]
  - Erythema [Recovered/Resolved]
  - Stomatitis [Recovered/Resolved]

NARRATIVE: CASE EVENT DATE: 20140908
